FAERS Safety Report 23991018 (Version 7)
Quarter: 2024Q4

REPORT INFORMATION
  Report Type: Spontaneous
  Country: CN (occurrence: CN)
  Receive Date: 20240619
  Receipt Date: 20241015
  Transmission Date: 20250115
  Serious: Yes (Hospitalization, Other)
  Sender: SANOFI AVENTIS
  Company Number: CN-SANOFI-02088596

PATIENT
  Age: 67 Year
  Sex: Male

DRUGS (5)
  1. DUPIXENT [Suspect]
     Active Substance: DUPILUMAB
     Indication: Dermatitis atopic
     Dosage: 600 MG, 1X
     Route: 058
     Dates: start: 20240407, end: 20240407
  2. DUPIXENT [Suspect]
     Active Substance: DUPILUMAB
     Dosage: 300 MG, QOW
     Route: 058
     Dates: start: 20240421, end: 2024
  3. METOPROLOL SUCCINATE [Concomitant]
     Active Substance: METOPROLOL SUCCINATE
     Indication: Hypertension
     Dosage: 4.75 MG, QD
  4. AMLODIPINE BESYLATE [Concomitant]
     Active Substance: AMLODIPINE BESYLATE
     Indication: Hypertension
     Dosage: 5 MG, QD
  5. ATORVASTATIN CALCIUM [Concomitant]
     Active Substance: ATORVASTATIN CALCIUM
     Indication: Hypertension
     Dosage: 20 MG, QD

REACTIONS (16)
  - Carbohydrate antigen 19-9 increased [Recovered/Resolved]
  - Suspected counterfeit product [Unknown]
  - Basilar artery aneurysm [Unknown]
  - Cachexia [Unknown]
  - Depression [Unknown]
  - Blood homocysteine decreased [Unknown]
  - Protein total decreased [Unknown]
  - Lipoprotein increased [Unknown]
  - Glomerular filtration rate increased [Unknown]
  - Blood fibrinogen increased [Unknown]
  - Hepatitis B surface antibody positive [Unknown]
  - Hepatitis B e antibody positive [Unknown]
  - Hepatitis B core antibody positive [Unknown]
  - Large intestine polyp [Unknown]
  - Pancreatic enlargement [Unknown]
  - Insomnia [Unknown]

NARRATIVE: CASE EVENT DATE: 20240101
